FAERS Safety Report 14974233 (Version 1)
Quarter: 2018Q2

REPORT INFORMATION
  Report Type: Spontaneous
  Country: US (occurrence: US)
  Receive Date: 20180605
  Receipt Date: 20180605
  Transmission Date: 20180711
  Serious: Yes (Other)
  Sender: FDA-Public Use
  Company Number: US-TARO-2018TAR00413

PATIENT
  Sex: Female

DRUGS (2)
  1. AMIODARONE HCL TABLET 200 MG [Suspect]
     Active Substance: AMIODARONE HYDROCHLORIDE
     Indication: ATRIAL FIBRILLATION
     Dosage: UNK
     Dates: start: 201204
  2. UNSPECIFIED MEDICATIONS [Suspect]
     Active Substance: UNSPECIFIED INGREDIENT

REACTIONS (11)
  - Pulmonary hypertension [Unknown]
  - Gait disturbance [Unknown]
  - Anxiety [Unknown]
  - Off label use [Unknown]
  - Unevaluable event [Unknown]
  - Nervousness [Unknown]
  - Asthenia [Unknown]
  - Pain [Unknown]
  - Weight fluctuation [Unknown]
  - Pulmonary toxicity [Unknown]
  - Depression [Unknown]

NARRATIVE: CASE EVENT DATE: 201606
